FAERS Safety Report 5456382-5 (Version None)
Quarter: 2007Q3

REPORT INFORMATION
  Report Type: 
  Country: None (occurrence: None)
  Receive Date: 20070918
  Receipt Date: 20070910
  Transmission Date: 20080115
  Serious: Yes (Other)
  Sender: FDA-Public Use
  Company Number: US-ASTRAZENECA-2007UW00529

PATIENT
  Age: 63 Year
  Sex: Female
  Weight: 81.6 kg

DRUGS (11)
  1. ARIMIDEX [Suspect]
     Indication: BREAST CANCER
     Route: 048
     Dates: start: 20061101, end: 20070903
  2. LIPITOR [Concomitant]
  3. TOPROL-XL [Concomitant]
     Route: 048
  4. BELLAMINE S [Concomitant]
  5. VITAMINS [Concomitant]
  6. CENTRUM SILVER [Concomitant]
  7. CALCIUM [Concomitant]
  8. VITAMIN E [Concomitant]
  9. ASCORBIC ACID [Concomitant]
  10. GREEN TEA [Concomitant]
  11. GRAPE SEED [Concomitant]

REACTIONS (4)
  - GASTRIC OPERATION [None]
  - HERNIA HIATUS REPAIR [None]
  - PAIN [None]
  - PAIN IN EXTREMITY [None]
